FAERS Safety Report 6496772-5 (Version None)
Quarter: 2009Q4

REPORT INFORMATION
  Report Type: 
  Country: None (occurrence: None)
  Receive Date: 20091125
  Receipt Date: 20090413
  Transmission Date: 20100525
  Serious: Yes (Hospitalization)
  Sender: FDA-Public Use
  Company Number: 2009BH005980

PATIENT
  Age: 64 Year
  Sex: Female

DRUGS (12)
  1. DIANEAL [Suspect]
     Indication: PERITONEAL DIALYSIS
     Dosage: 14.5 L; EVERY DAY; IP
     Route: 033
     Dates: start: 20031006
  2. RENAL TAB [Concomitant]
  3. ASPIRIN [Concomitant]
  4. LOVASTATIN [Concomitant]
  5. RENAGEL [Concomitant]
  6. VITAMIN E [Concomitant]
  7. FISH OIL [Concomitant]
  8. PLAVIX [Concomitant]
  9. VICODIN [Concomitant]
  10. TEMAZEPAM [Concomitant]
  11. CALCITRIOL [Concomitant]
  12. METOPROLOL TARTRATE [Concomitant]

REACTIONS (2)
  - PERITONEAL DIALYSIS COMPLICATION [None]
  - PERITONITIS [None]
